APPROVED DRUG PRODUCT: PREDNICEN-M
Active Ingredient: PREDNISONE
Strength: 5MG
Dosage Form/Route: TABLET;ORAL
Application: A084655 | Product #001
Applicant: SCHWARZ PHARMA INC
Approved: Approved Prior to Jan 1, 1982 | RLD: No | RS: No | Type: DISCN